FAERS Safety Report 7152981-3 (Version None)
Quarter: 2010Q4

REPORT INFORMATION
  Report Type: 
  Country: None (occurrence: None)
  Receive Date: 20101209
  Receipt Date: 20101209
  Transmission Date: 20110411
  Serious: Yes (Death)
  Sender: FDA-Public Use
  Company Number: None

PATIENT
  Age: 71 Year
  Sex: Female

DRUGS (9)
  1. REVLIMID [Suspect]
     Indication: MULTIPLE MYELOMA
     Dosage: 15MG DAILY ORALLY
     Route: 048
     Dates: start: 20090301, end: 20100601
  2. DURAGESIC-50 [Concomitant]
  3. SENNA [Concomitant]
  4. PRILOSEC [Concomitant]
  5. DECADRON [Concomitant]
  6. ROXANOL [Concomitant]
  7. ACYCLOVIR [Concomitant]
  8. COLACE [Concomitant]
  9. REMERON [Concomitant]

REACTIONS (2)
  - DISEASE PROGRESSION [None]
  - MULTIPLE MYELOMA [None]
